FAERS Safety Report 23799347 (Version 1)
Quarter: 2024Q2

REPORT INFORMATION
  Report Type: Spontaneous
  Country: AU (occurrence: AU)
  Receive Date: 20240430
  Receipt Date: 20240430
  Transmission Date: 20240716
  Serious: Yes (Hospitalization, Other)
  Sender: FDA-Public Use
  Company Number: AU-GLANDPHARMA-AU-2024GLNLIT00074

PATIENT
  Age: 40 Year
  Sex: Male

DRUGS (5)
  1. HEPARIN SODIUM [Suspect]
     Active Substance: HEPARIN SODIUM
     Indication: Anticoagulant therapy
     Dosage: 5000 UNITS
     Route: 042
  2. HEPARIN SODIUM [Suspect]
     Active Substance: HEPARIN SODIUM
     Dosage: 25000 UNITS
     Route: 065
  3. HEPARIN SODIUM [Suspect]
     Active Substance: HEPARIN SODIUM
     Dosage: 2500 UNITS
     Route: 042
  4. TENECTEPLASE [Suspect]
     Active Substance: TENECTEPLASE
     Indication: Acute myocardial infarction
     Route: 065
  5. TICAGRELOR [Suspect]
     Active Substance: TICAGRELOR
     Indication: Product used for unknown indication
     Route: 065

REACTIONS (1)
  - Spinal epidural haematoma [Recovered/Resolved]
